FAERS Safety Report 23023467 (Version 1)
Quarter: 2023Q4

REPORT INFORMATION
  Report Type: Report from Study
  Country: US (occurrence: US)
  Receive Date: 20231003
  Receipt Date: 20231003
  Transmission Date: 20240110
  Serious: Yes (Hospitalization)
  Sender: FDA-Public Use
  Company Number: US-ABBVIE-5364566

PATIENT
  Sex: Male

DRUGS (1)
  1. IMBRUVICA [Suspect]
     Active Substance: IBRUTINIB
     Indication: Chronic lymphocytic leukaemia
     Dosage: TIME INTERVAL: 0.33333333 DAYS
     Route: 048
     Dates: start: 20230107, end: 20230720

REACTIONS (7)
  - Prostatic specific antigen increased [Unknown]
  - Contusion [Unknown]
  - Skin atrophy [Unknown]
  - Blood blister [Unknown]
  - Skin laceration [Unknown]
  - Oral fungal infection [Unknown]
  - Tongue blistering [Unknown]

NARRATIVE: CASE EVENT DATE: 20230101
